FAERS Safety Report 20111004 (Version 2)
Quarter: 2025Q2

REPORT INFORMATION
  Report Type: Spontaneous
  Country: BE (occurrence: BE)
  Receive Date: 20211125
  Receipt Date: 20250603
  Transmission Date: 20250716
  Serious: Yes (Life-Threatening, Other)
  Sender: AUROBINDO
  Company Number: BE-AMGEN-BELSP2021174154

PATIENT
  Age: 51 Year
  Sex: Female

DRUGS (3)
  1. ATORVASTATIN [Suspect]
     Active Substance: ATORVASTATIN
     Indication: Hypercholesterolaemia
     Route: 065
  2. EZETIMIBE [Suspect]
     Active Substance: EZETIMIBE
     Indication: Hypercholesterolaemia
     Route: 065
  3. EVOLOCUMAB [Suspect]
     Active Substance: EVOLOCUMAB
     Indication: Hypercholesterolaemia
     Route: 065

REACTIONS (13)
  - Coronary artery disease [Recovered/Resolved]
  - Carotid artery stenosis [Recovered/Resolved]
  - Vascular stent occlusion [Unknown]
  - Rectal haemorrhage [Unknown]
  - Low density lipoprotein increased [Recovered/Resolved]
  - Anaplastic large cell lymphoma T- and null-cell types [Recovered/Resolved]
  - Angina unstable [Recovered/Resolved]
  - Renal artery stenosis [Recovered/Resolved]
  - Vasculitis [Recovered/Resolved]
  - Xanthelasma [Recovered/Resolved]
  - Vascular stent stenosis [Unknown]
  - Renovascular hypertension [Recovered/Resolved]
  - Drug ineffective [Unknown]
